FAERS Safety Report 9151573 (Version 2)
Quarter: 2013Q2

REPORT INFORMATION
  Report Type: Spontaneous
  Country: CA (occurrence: CA)
  Receive Date: 20130308
  Receipt Date: 20130411
  Transmission Date: 20140414
  Serious: Yes (Other)
  Sender: FDA-Public Use
  Company Number: CA-AMGEN-CANSP2013014142

PATIENT
  Age: 71 Year
  Sex: Female
  Weight: 53.97 kg

DRUGS (2)
  1. PROLIA [Suspect]
     Indication: OSTEOPOROSIS POSTMENOPAUSAL
     Dosage: UNK UNK, Q6MO
     Dates: start: 20120613
  2. TAPAZOLE [Concomitant]
     Indication: BASEDOW^S DISEASE
     Dosage: 5 MG, UNK
     Route: 048
     Dates: start: 201303

REACTIONS (2)
  - Chronic obstructive pulmonary disease [Unknown]
  - Walking aid user [Unknown]
